FAERS Safety Report 13678874 (Version 1)
Quarter: 2017Q2

REPORT INFORMATION
  Report Type: Spontaneous
  Country: GB (occurrence: GB)
  Receive Date: 20170622
  Receipt Date: 20170622
  Transmission Date: 20170830
  Serious: Yes (Other)
  Sender: FDA-Public Use
  Company Number: GB-BECTON DICKINSON-2017BDN00180

PATIENT
  Age: 2 Year
  Sex: Female

DRUGS (2)
  1. GENERAL ANESTHESIA INDUCTION AGENTS [Concomitant]
     Route: 065
  2. CHLORHEXIDINE [Suspect]
     Active Substance: CHLORHEXIDINE
     Indication: ANTIBIOTIC PROPHYLAXIS
     Dosage: CLEANED EPIDURAL SITE 3 TIMES
     Route: 061

REACTIONS (1)
  - Staphylococcal abscess [Unknown]
